FAERS Safety Report 6891756-7 (Version None)
Quarter: 2010Q3

REPORT INFORMATION
  Report Type: 
  Country: None (occurrence: None)
  Receive Date: 20100731
  Receipt Date: 20071003
  Transmission Date: 20110219
  Serious: No
  Sender: FDA-Public Use
  Company Number: US-PFIZER INC-2007082457

PATIENT
  Sex: Female
  Weight: 62.6 kg

DRUGS (10)
  1. NEURONTIN [Suspect]
     Indication: NEUROPATHY PERIPHERAL
     Dates: end: 20060101
  2. NEURONTIN [Suspect]
     Indication: MULTIPLE SCLEROSIS
  3. BACLOFEN [Concomitant]
  4. ACTONEL [Concomitant]
  5. ALLEGRA [Concomitant]
  6. BUMEX [Concomitant]
  7. LODINE XL [Concomitant]
  8. VACCINIUM MACROCARPON [Concomitant]
  9. CALCIUM [Concomitant]
  10. PERCOCET [Concomitant]

REACTIONS (1)
  - DRUG INEFFECTIVE [None]
